FAERS Safety Report 19860391 (Version 1)
Quarter: 2021Q3

REPORT INFORMATION
  Report Type: Spontaneous
  Country: FR (occurrence: FR)
  Receive Date: 20210921
  Receipt Date: 20210921
  Transmission Date: 20211014
  Serious: Yes (Other)
  Sender: FDA-Public Use
  Company Number: FR-DRREDDYS-SPO/FRA/21/0140185

PATIENT
  Age: 21 Year
  Sex: Female

DRUGS (2)
  1. IBUPROFEN. [Suspect]
     Active Substance: IBUPROFEN
     Indication: TOOTHACHE
     Dosage: INCONNUE
     Dates: start: 20210407, end: 20210408
  2. PARACETAMOL [Suspect]
     Active Substance: ACETAMINOPHEN
     Indication: TOOTHACHE
     Dates: start: 20210407, end: 20210408

REACTIONS (2)
  - Hepatic cytolysis [Not Recovered/Not Resolved]
  - Poisoning [Not Recovered/Not Resolved]

NARRATIVE: CASE EVENT DATE: 20210407
